FAERS Safety Report 9726066 (Version 2)
Quarter: 2014Q1

REPORT INFORMATION
  Report Type: Spontaneous
  Country: CA (occurrence: CA)
  Receive Date: 20131203
  Receipt Date: 20140102
  Transmission Date: 20141002
  Serious: Yes (Other)
  Sender: FDA-Public Use
  Company Number: CA-SA-2013SA121195

PATIENT
  Age: 62 Year
  Sex: Female
  Weight: 69.6 kg

DRUGS (4)
  1. ELOXATIN [Suspect]
     Indication: COLORECTAL CANCER
     Dosage: FREQUENCY : EVERY 2 WEEKS
     Route: 042
     Dates: start: 20130517, end: 20130607
  2. DEXAMETHASONE [Concomitant]
     Dosage: STRENGTH: 20 MG; 30 MIN PRE CHEMO
     Route: 048
  3. ONDANSETRON [Concomitant]
     Dosage: STRENGTH: 8MG; 30 MIN PRE CHEMO
     Route: 048
  4. LEUCOVORIN [Concomitant]

REACTIONS (6)
  - Blood pressure increased [Recovered/Resolved]
  - Diplopia [Recovered/Resolved]
  - Feeling abnormal [Recovered/Resolved]
  - Pain in extremity [Recovered/Resolved]
  - Paraesthesia [Recovered/Resolved]
  - Speech disorder [Recovered/Resolved]
